FAERS Safety Report 18527040 (Version 1)
Quarter: 2020Q4

REPORT INFORMATION
  Report Type: Spontaneous
  Country: NP (occurrence: NP)
  Receive Date: 20201120
  Receipt Date: 20201120
  Transmission Date: 20210114
  Serious: Yes (Disabling)
  Sender: FDA-Public Use
  Company Number: None

PATIENT
  Age: 27 Year
  Sex: Male
  Weight: 59 kg

DRUGS (2)
  1. CIPROFLOXACIN HYDROCHLORIDE. [Suspect]
     Active Substance: CIPROFLOXACIN HYDROCHLORIDE
     Indication: PRODUCT USED FOR UNKNOWN INDICATION
     Route: 048
     Dates: start: 20190319, end: 20191019
  2. VITAMIN B [Concomitant]
     Active Substance: VITAMIN B

REACTIONS (8)
  - Tendon pain [None]
  - Pain in extremity [None]
  - Paraesthesia [None]
  - Stress [None]
  - Skin disorder [None]
  - Anxiety [None]
  - Abdominal pain upper [None]
  - C-reactive protein increased [None]

NARRATIVE: CASE EVENT DATE: 20190326
